FAERS Safety Report 16734638 (Version 1)
Quarter: 2019Q4

REPORT INFORMATION
  Report Type: Spontaneous
  Country: US (occurrence: US)
  Receive Date: 20190822
  Receipt Date: 20190822
  Transmission Date: 20200122
  Serious: No
  Sender: FDA-Public Use
  Company Number: None

PATIENT
  Age: 36 Year
  Sex: Male
  Weight: 85.95 kg

DRUGS (2)
  1. MESALIMINE [Concomitant]
  2. QBREXZA [Suspect]
     Active Substance: GLYCOPYRRONIUM TOSYLATE
     Indication: HYPERHIDROSIS
     Dosage: ?          QUANTITY:1 1;?
     Route: 061
     Dates: start: 20190819, end: 20190820

REACTIONS (2)
  - Dry mouth [None]
  - Oropharyngeal pain [None]

NARRATIVE: CASE EVENT DATE: 20190821
